FAERS Safety Report 13874178 (Version 1)
Quarter: 2017Q3

REPORT INFORMATION
  Report Type: Spontaneous
  Country: GB (occurrence: GB)
  Receive Date: 20170816
  Receipt Date: 20170816
  Transmission Date: 20171127
  Serious: Yes (Disabling)
  Sender: FDA-Public Use
  Company Number: GB-BRISTOL-MYERS SQUIBB COMPANY-BMS-2017-071798

PATIENT
  Age: 92 Year
  Sex: Female
  Weight: 62 kg

DRUGS (2)
  1. ELIQUIS [Suspect]
     Active Substance: APIXABAN
     Indication: CEREBROVASCULAR ACCIDENT PROPHYLAXIS
     Dosage: 2.5 MG, BID
     Route: 048
     Dates: start: 20170710, end: 20170726
  2. RAMIPRIL. [Concomitant]
     Active Substance: RAMIPRIL
     Indication: LEFT VENTRICULAR FAILURE
     Dosage: UNK
     Route: 065

REACTIONS (1)
  - Hallucinations, mixed [Recovering/Resolving]

NARRATIVE: CASE EVENT DATE: 20170720
